FAERS Safety Report 12067766 (Version 1)
Quarter: 2016Q1

REPORT INFORMATION
  Report Type: Spontaneous
  Country: US (occurrence: US)
  Receive Date: 20160211
  Receipt Date: 20160211
  Transmission Date: 20160526
  Serious: No
  Sender: FDA-Public Use
  Company Number: US-SMITH AND NEPHEW, INC-2015SMT00033

PATIENT
  Sex: Female

DRUGS (3)
  1. UNSPECIFIED MEDICATION(S) [Concomitant]
  2. REGRANEX [Suspect]
     Active Substance: BECAPLERMIN
     Dosage: UNK
     Route: 061
     Dates: start: 201502, end: 20150312
  3. REGRANEX [Suspect]
     Active Substance: BECAPLERMIN
     Indication: BLISTER
     Dosage: UNK, 1X/DAY
     Route: 061
     Dates: start: 2015, end: 2015

REACTIONS (3)
  - Cough [Recovered/Resolved]
  - Off label use [Unknown]
  - Throat irritation [Recovered/Resolved]

NARRATIVE: CASE EVENT DATE: 2015
